FAERS Safety Report 4448830-4 (Version None)
Quarter: 2004Q3

REPORT INFORMATION
  Report Type: 
  Country: None (occurrence: None)
  Receive Date: 20040909
  Receipt Date: 20040827
  Transmission Date: 20050211
  Serious: Yes (Hospitalization)
  Sender: FDA-Public Use
  Company Number: K200401330

PATIENT
  Age: 77 Year
  Sex: Male
  Weight: 61.2 kg

DRUGS (7)
  1. ALTACE [Suspect]
     Indication: HYPERTENSION
     Dosage: SEE IMAGE
     Route: 048
  2. ALTACE [Suspect]
     Indication: HYPERTENSION
     Dosage: SEE IMAGE
     Route: 048
     Dates: start: 20040829
  3. ATENOLOL [Suspect]
     Indication: HYPERTENSION
     Dosage: ORAL
     Route: 048
     Dates: start: 20040101
  4. LIPITOR [Concomitant]
  5. ZETIA [Concomitant]
  6. PRILOSEC [Concomitant]
  7. MVI (VITAMINS NOS) [Concomitant]

REACTIONS (9)
  - BLOOD PRESSURE INCREASED [None]
  - BLOOD PRESSURE SYSTOLIC ABNORMAL [None]
  - CAROTID ARTERY STENOSIS [None]
  - DRUG INEFFECTIVE [None]
  - FEELING HOT [None]
  - HEART RATE DECREASED [None]
  - PYREXIA [None]
  - RENAL IMPAIRMENT [None]
  - URETERIC OBSTRUCTION [None]
